FAERS Safety Report 5618708-9 (Version None)
Quarter: 2008Q1

REPORT INFORMATION
  Report Type: 
  Country: None (occurrence: None)
  Receive Date: 20080205
  Receipt Date: 20080205
  Transmission Date: 20080703
  Serious: Yes (Hospitalization)
  Sender: FDA-Public Use
  Company Number: None

PATIENT
  Sex: Female
  Weight: 81.8289 kg

DRUGS (1)
  1. LYBREL [Suspect]
     Dosage: 1 TAB DAILY PO
     Route: 048

REACTIONS (3)
  - ARTHROPATHY [None]
  - DEEP VEIN THROMBOSIS [None]
  - OEDEMA PERIPHERAL [None]
